FAERS Safety Report 15819796 (Version 1)
Quarter: 2019Q1

REPORT INFORMATION
  Report Type: Spontaneous
  Country: NL (occurrence: NL)
  Receive Date: 20190114
  Receipt Date: 20190114
  Transmission Date: 20190417
  Serious: Yes (Other)
  Sender: FDA-Public Use
  Company Number: NL-BAXTER-2019BAX000367

PATIENT
  Age: 37 Year
  Sex: Female

DRUGS (1)
  1. ENDOXAN I.V., POEDER VOOR OPLOSSING VOOR INJECTIE 200, 500, 750, 1000, [Suspect]
     Active Substance: CYCLOPHOSPHAMIDE
     Indication: SALIVARY GLAND CANCER
     Dosage: UNK
     Route: 065

REACTIONS (2)
  - Salivary gland cancer [Unknown]
  - Malignant neoplasm progression [Unknown]
